FAERS Safety Report 17471410 (Version 1)
Quarter: 2020Q1

REPORT INFORMATION
  Report Type: Report from Study
  Country: None (occurrence: CA)
  Receive Date: 20200228
  Receipt Date: 20200228
  Transmission Date: 20200409
  Serious: Yes (Hospitalization, Other)
  Sender: FDA-Public Use
  Company Number: CA-ABBVIE-20K-028-3293300-00

PATIENT
  Sex: Female

DRUGS (1)
  1. HUMIRA [Suspect]
     Active Substance: ADALIMUMAB
     Indication: CROHN^S DISEASE
     Route: 058
     Dates: start: 20180823

REACTIONS (10)
  - Suture rupture [Recovered/Resolved]
  - Intestinal perforation [Unknown]
  - Sepsis [Unknown]
  - Renal disorder [Unknown]
  - Crohn^s disease [Unknown]
  - Gastroenteritis Escherichia coli [Unknown]
  - Injection site pain [Not Recovered/Not Resolved]
  - Pain [Unknown]
  - Intestinal resection [Unknown]
  - Malaise [Unknown]

NARRATIVE: CASE EVENT DATE: 2019
